FAERS Safety Report 10066973 (Version 1)
Quarter: 2014Q2

REPORT INFORMATION
  Report Type: Spontaneous
  Country: JP (occurrence: JP)
  Receive Date: 20140409
  Receipt Date: 20140409
  Transmission Date: 20141212
  Serious: Yes (Other)
  Sender: FDA-Public Use
  Company Number: JP-PFIZER INC-2014097187

PATIENT
  Sex: 0

DRUGS (1)
  1. SOLANAX [Suspect]
     Dosage: UNK
     Route: 048

REACTIONS (1)
  - Toxic skin eruption [Recovered/Resolved]
